FAERS Safety Report 7638786-5 (Version None)
Quarter: 2011Q3

REPORT INFORMATION
  Report Type: 
  Country: None (occurrence: None)
  Receive Date: 20110721
  Receipt Date: 20110705
  Transmission Date: 20111222
  Serious: Yes (Hospitalization)
  Sender: FDA-Public Use
  Company Number: BENZ20110004

PATIENT
  Age: 68 Year
  Sex: Female

DRUGS (6)
  1. BENZTROPINE MESYLATE [Suspect]
     Indication: DYSTONIA
     Dosage: 4 MG, 2 IN 1 D, INTRAVENOUS
     Route: 042
  2. SYNTHROID [Concomitant]
  3. HALOPERIDOL [Suspect]
     Indication: PSYCHOTIC BEHAVIOUR
     Dosage: 1.5 MG, 3 IN 1 D, ORAL
     Route: 048
  4. HALOPERIDOL [Suspect]
     Indication: AGITATION
     Dosage: 1.5 MG, 3 IN 1 D, ORAL
     Route: 048
  5. CARDIZEM XL (DILTIAZEM HYDROCHLORIDE) (DILTIAZEM HYDROCHLORIDE) [Concomitant]
  6. PREMARIN (ESTROGENS CONJUGATED) (ESTROGENS CONJUGATED) [Concomitant]

REACTIONS (9)
  - PYREXIA [None]
  - DYSKINESIA [None]
  - NO THERAPEUTIC RESPONSE [None]
  - COLONIC PSEUDO-OBSTRUCTION [None]
  - DYSTONIA [None]
  - CONFUSIONAL STATE [None]
  - DEHYDRATION [None]
  - HAEMATOCRIT DECREASED [None]
  - DRUG INTERACTION [None]
